FAERS Safety Report 4768272-1 (Version None)
Quarter: 2005Q3

REPORT INFORMATION
  Report Type: 
  Country: None (occurrence: None)
  Receive Date: 20050914
  Receipt Date: 20050628
  Transmission Date: 20060218
  Serious: Yes (Hospitalization, Other)
  Sender: FDA-Public Use
  Company Number: US-BRISTOL-MYERS SQUIBB COMPANY-13018882

PATIENT
  Age: 72 Year
  Sex: Male

DRUGS (7)
  1. CETUXIMAB [Suspect]
     Indication: NON-SMALL CELL LUNG CANCER
     Dosage: 3RD COURSE. THERAPY START DATE 03-MAY-05.
     Route: 042
     Dates: start: 20050614, end: 20050614
  2. CARBOPLATIN [Suspect]
     Indication: NON-SMALL CELL LUNG CANCER
     Dosage: 3RD COURSE. THERAPY START DATE 03-MAY-05.
     Route: 042
     Dates: start: 20050614, end: 20050614
  3. TAXOTERE [Suspect]
     Indication: NON-SMALL CELL LUNG CANCER
     Dosage: 3RD COURSE. THERAPY START DATE 03-MAY-05.
     Route: 042
     Dates: start: 20050614, end: 20050614
  4. ARICEPT [Concomitant]
     Dates: start: 20000101
  5. ARANESP [Concomitant]
     Dates: start: 20050623
  6. ALUMINUM HYDROXIDE AND MAGNESIUM TRISILICATE [Concomitant]
  7. TYLENOL [Concomitant]

REACTIONS (2)
  - HYPOTENSION [None]
  - PLEURAL EFFUSION [None]
